FAERS Safety Report 20945221 (Version 2)
Quarter: 2022Q2

REPORT INFORMATION
  Report Type: Spontaneous
  Country: ES (occurrence: None)
  Receive Date: 20220610
  Receipt Date: 20220614
  Transmission Date: 20220721
  Serious: Yes (Life-Threatening, Hospitalization, Other)
  Sender: FDA-Public Use
  Company Number: 2022A207626

PATIENT
  Age: 62 Year
  Sex: Male
  Weight: 70 kg

DRUGS (9)
  1. TICAGRELOR [Suspect]
     Active Substance: TICAGRELOR
     Indication: Product used for unknown indication
     Dosage: 180.0MG UNKNOWN
     Route: 048
  2. CANGRELOR [Suspect]
     Active Substance: CANGRELOR
     Indication: Percutaneous coronary intervention
     Dosage: 120 MILLIGRAM120.0MG UNKNOWN
     Route: 040
     Dates: start: 20210629, end: 20210630
  3. CANGRELOR [Suspect]
     Active Substance: CANGRELOR
     Indication: Antiplatelet therapy
     Dosage: 120 MILLIGRAM120.0MG UNKNOWN
     Route: 040
     Dates: start: 20210629, end: 20210630
  4. CANGRELOR [Suspect]
     Active Substance: CANGRELOR
     Indication: Percutaneous coronary intervention
     Dosage: UNK UNKNOWN
     Route: 042
     Dates: start: 20210629, end: 20210630
  5. CANGRELOR [Suspect]
     Active Substance: CANGRELOR
     Indication: Antiplatelet therapy
     Dosage: UNK UNKNOWN
     Route: 042
     Dates: start: 20210629, end: 20210630
  6. ASPIRIN [Suspect]
     Active Substance: ASPIRIN
     Indication: Product used for unknown indication
     Dosage: 300.0MG UNKNOWN
     Route: 042
     Dates: start: 20210629
  7. HEPARIN SODIUM [Suspect]
     Active Substance: HEPARIN SODIUM
     Indication: Anticoagulant therapy
     Dosage: 8000.0IU UNKNOWN
     Route: 065
  8. DOBUTAMINE HYDROCHLORIDE [Concomitant]
     Active Substance: DOBUTAMINE HYDROCHLORIDE
     Indication: Product used for unknown indication
     Dosage: UNK
     Route: 065
     Dates: start: 20210629
  9. NORADRENALINA [Concomitant]
     Indication: Product used for unknown indication
     Dosage: UNK
     Route: 065
     Dates: start: 20210629

REACTIONS (6)
  - Overdose [Recovered/Resolved]
  - Pericardial effusion [Unknown]
  - Cardiac tamponade [Unknown]
  - Coronary artery dissection [Unknown]
  - Arterial haemorrhage [Unknown]
  - Off label use [Recovered/Resolved]

NARRATIVE: CASE EVENT DATE: 20210629
